FAERS Safety Report 5817821-0 (Version None)
Quarter: 2008Q3

REPORT INFORMATION
  Report Type: 
  Country: None (occurrence: None)
  Receive Date: 20080722
  Receipt Date: 20080715
  Transmission Date: 20090109
  Serious: Yes (Death)
  Sender: FDA-Public Use
  Company Number: BE-AVENTIS-200816610GDDC

PATIENT
  Age: 61 Year
  Sex: Male
  Weight: 45.8 kg

DRUGS (8)
  1. TAXOTERE [Suspect]
     Route: 042
     Dates: start: 20080619, end: 20080619
  2. ERBITUX [Suspect]
     Dosage: DOSE: CUMULATIVE DOSE 368 MG
     Route: 042
     Dates: start: 20080619, end: 20080626
  3. FLUOROURACIL [Suspect]
     Dosage: DOSE: 5513 MG/M2/DAY (DAY 1-5)
     Route: 041
     Dates: start: 20080619, end: 20080623
  4. CISPLATIN [Suspect]
     Route: 042
     Dates: start: 20080619, end: 20080619
  5. SERETIDE DISCUS [Concomitant]
     Dosage: DOSE: 50/100
     Route: 055
     Dates: start: 20080614
  6. SPIRIVA [Concomitant]
     Route: 055
     Dates: start: 20080614
  7. DUAVENT [Concomitant]
     Dosage: DOSE: UNK
     Route: 055
     Dates: start: 20000101
  8. SOTALOL HCL [Concomitant]
     Dates: start: 20010101

REACTIONS (1)
  - VENTRICULAR ARRHYTHMIA [None]
